FAERS Safety Report 4998453-3 (Version None)
Quarter: 2006Q2

REPORT INFORMATION
  Report Type: 
  Country: None (occurrence: None)
  Receive Date: 20060510
  Receipt Date: 20060503
  Transmission Date: 20061013
  Serious: Yes (Hospitalization)
  Sender: FDA-Public Use
  Company Number: FR-GLAXOSMITHKLINE-B0422294A

PATIENT
  Age: 59 Year
  Sex: Female

DRUGS (8)
  1. ZINNAT [Suspect]
     Indication: COUGH
     Route: 048
     Dates: start: 20051118, end: 20051126
  2. MUXOL [Suspect]
     Indication: COUGH
     Route: 048
     Dates: start: 20051118, end: 20051126
  3. SOLUPRED [Suspect]
     Indication: COUGH
     Route: 048
     Dates: start: 20051118, end: 20051126
  4. TRENTADIL [Suspect]
     Indication: COUGH
     Dosage: 300MG UNKNOWN
     Route: 048
     Dates: start: 20051118, end: 20051126
  5. FLUOCINOLONE ACETONIDE [Concomitant]
     Dates: start: 20051118, end: 20051124
  6. NEOMYCIN + POLYMYCIN B SULFATE [Concomitant]
     Dates: start: 20051118, end: 20051124
  7. MOVICOL [Concomitant]
     Route: 048
     Dates: start: 20051118
  8. EFFERALGAN [Concomitant]
     Dates: start: 20051118

REACTIONS (3)
  - ORAL MUCOSAL DISORDER [None]
  - PRURIGO [None]
  - RASH MACULO-PAPULAR [None]
